FAERS Safety Report 10229929 (Version 1)
Quarter: 2014Q2

REPORT INFORMATION
  Report Type: Spontaneous
  Country: US (occurrence: None)
  Receive Date: 20140610
  Receipt Date: 20140610
  Transmission Date: 20141212
  Serious: Yes (Other)
  Sender: FDA-Public Use
  Company Number: None

PATIENT
  Age: 77 Year
  Sex: Female

DRUGS (4)
  1. AFINITOR [Suspect]
     Indication: NEOPLASM MALIGNANT
     Route: 048
     Dates: start: 20140523
  2. AFINITOR [Suspect]
     Indication: BONE DISORDER
     Route: 048
     Dates: start: 20140523
  3. EXEMESTANE [Suspect]
     Indication: NEOPLASM MALIGNANT
     Route: 048
     Dates: start: 20140523
  4. EXEMESTANE [Suspect]
     Indication: BONE DISORDER
     Route: 048
     Dates: start: 20140523

REACTIONS (2)
  - Abdominal pain upper [None]
  - Constipation [None]
